FAERS Safety Report 8389137-2 (Version None)
Quarter: 2012Q2

REPORT INFORMATION
  Report Type: 
  Country: None (occurrence: None)
  Receive Date: 20120528
  Receipt Date: 20120523
  Transmission Date: 20120825
  Serious: Yes (Hospitalization, Other)
  Sender: FDA-Public Use
  Company Number: PHHY2012AE044779

PATIENT
  Sex: Female

DRUGS (1)
  1. GILENYA [Suspect]
     Indication: RELAPSING-REMITTING MULTIPLE SCLEROSIS
     Dosage: 0.5 MG, QD
     Route: 048
     Dates: start: 20120502, end: 20120517

REACTIONS (5)
  - PYREXIA [None]
  - RASH [None]
  - DERMATITIS [None]
  - ABDOMINAL WALL ABSCESS [None]
  - MUSCULAR WEAKNESS [None]
